FAERS Safety Report 23426236 (Version 9)
Quarter: 2025Q2

REPORT INFORMATION
  Report Type: Report from Study
  Country: US (occurrence: US)
  Receive Date: 20240122
  Receipt Date: 20250519
  Transmission Date: 20250716
  Serious: Yes (Hospitalization, Other)
  Sender: TAKEDA
  Company Number: US-TAKEDA-2024TUS004327

PATIENT
  Age: 47 Year
  Sex: Female
  Weight: 69 kg

DRUGS (15)
  1. LANADELUMAB [Suspect]
     Active Substance: LANADELUMAB
     Indication: Product used for unknown indication
  2. TREPROSTINIL [Suspect]
     Active Substance: TREPROSTINIL
     Indication: Pulmonary arterial hypertension
     Dosage: 32 MICROGRAM, QID
     Dates: start: 202305
  3. TREPROSTINIL [Suspect]
     Active Substance: TREPROSTINIL
  4. TYVASO DPI [Suspect]
     Active Substance: TREPROSTINIL
     Indication: Pulmonary arterial hypertension
     Dosage: 32 MICROGRAM, QID
     Dates: start: 202305
  5. TYVASO DPI [Suspect]
     Active Substance: TREPROSTINIL
  6. RUCONEST [Suspect]
     Active Substance: CONESTAT ALFA
     Indication: Laryngeal oedema
  7. RUCONEST [Suspect]
     Active Substance: CONESTAT ALFA
     Indication: Peripheral swelling
  8. RUCONEST [Suspect]
     Active Substance: CONESTAT ALFA
     Indication: Joint swelling
  9. RUCONEST [Suspect]
     Active Substance: CONESTAT ALFA
     Indication: Swelling face
  10. ADEMPAS [Concomitant]
     Active Substance: RIOCIGUAT
  11. NUCALA [Concomitant]
     Active Substance: MEPOLIZUMAB
  12. HEPARIN LOCK FLUSH [Concomitant]
     Active Substance: HEPARIN SODIUM
  13. BENADRYL [Concomitant]
     Active Substance: DIPHENHYDRAMINE HYDROCHLORIDE
  14. PREDNISONE [Concomitant]
     Active Substance: PREDNISONE
  15. PEPCID [Concomitant]
     Active Substance: FAMOTIDINE

REACTIONS (26)
  - Dyspnoea [Unknown]
  - Chest pain [Unknown]
  - Urinary tract infection [Unknown]
  - Asthma [Unknown]
  - Mental status changes [Unknown]
  - Vascular device infection [Unknown]
  - Pulmonary arterial hypertension [Unknown]
  - Hereditary angioedema [Not Recovered/Not Resolved]
  - Injection site rash [Unknown]
  - Injection site erythema [Unknown]
  - Road traffic accident [Recovered/Resolved]
  - Radial nerve palsy [Unknown]
  - Hypotension [Unknown]
  - Nausea [Unknown]
  - Vomiting [Unknown]
  - Weight fluctuation [Unknown]
  - Illness [Unknown]
  - Respiratory tract infection [Unknown]
  - Cough [Unknown]
  - Rhinitis [Unknown]
  - Infection [Unknown]
  - Product dose omission issue [Unknown]
  - Weight increased [Unknown]
  - Weight decreased [Unknown]
  - Therapy non-responder [Unknown]
  - Diarrhoea [Unknown]

NARRATIVE: CASE EVENT DATE: 20231215
